FAERS Safety Report 24396051 (Version 2)
Quarter: 2024Q4

REPORT INFORMATION
  Report Type: Report from Study
  Country: US (occurrence: US)
  Receive Date: 20241004
  Receipt Date: 20241202
  Transmission Date: 20250115
  Serious: Yes (Other)
  Sender: NOVARTIS
  Company Number: US-002147023-NVSC2024US193102

PATIENT

DRUGS (1)
  1. KESIMPTA [Suspect]
     Active Substance: OFATUMUMAB
     Indication: Relapsing multiple sclerosis
     Dosage: UNK UNK, QMO
     Route: 058

REACTIONS (9)
  - Mental impairment [Unknown]
  - General physical health deterioration [Unknown]
  - Pain [Unknown]
  - Hypoaesthesia [Unknown]
  - Fall [Unknown]
  - Somnolence [Unknown]
  - Feeling abnormal [Unknown]
  - Memory impairment [Unknown]
  - Attention deficit hyperactivity disorder [Unknown]
